FAERS Safety Report 11096111 (Version 1)
Quarter: 2015Q2

REPORT INFORMATION
  Report Type: Spontaneous
  Country: FR (occurrence: None)
  Receive Date: 20150505
  Receipt Date: 20150505
  Transmission Date: 20150821
  Serious: Yes (Hospitalization)
  Sender: FDA-Public Use
  Company Number: FK201502015

PATIENT
  Age: 61 Year
  Sex: Female

DRUGS (3)
  1. PACLITAXEL 6MG/ML CONCENTRATE FOR SOLUTION FOR INFUSION (PACLITAXEL) (PACLITAXEL) [Suspect]
     Active Substance: PACLITAXEL
     Indication: OVARIAN EPITHELIAL CANCER
     Dosage: INTRAVENOUS (NOT OTHERWISE SPECIFIED)
     Route: 042
     Dates: start: 20150101, end: 20150217
  2. CARBOPLATIN HOSPIRA [Suspect]
     Active Substance: CARBOPLATIN
     Indication: OVARIAN EPITHELIAL CANCER
     Dates: start: 20150101, end: 20150217
  3. DOXORUBICIN (DOXORUBICIN) [Concomitant]
     Active Substance: DOXORUBICIN

REACTIONS (2)
  - Acute leukaemia [None]
  - Myelodysplastic syndrome [None]

NARRATIVE: CASE EVENT DATE: 20150224
